FAERS Safety Report 7339283-7 (Version None)
Quarter: 2011Q1

REPORT INFORMATION
  Report Type: 
  Country: None (occurrence: None)
  Receive Date: 20110308
  Receipt Date: 20110302
  Transmission Date: 20110831
  Serious: Yes (Death, Hospitalization, Other)
  Sender: FDA-Public Use
  Company Number: JP-ROXANE LABORATORIES, INC.-2011-RO-00243RO

PATIENT
  Age: 60 Year
  Sex: Male

DRUGS (1)
  1. DEXAMETHASONE [Suspect]
     Indication: MULTIPLE MYELOMA
     Dosage: 40 MG

REACTIONS (3)
  - CYTOMEGALOVIRUS COLITIS [None]
  - AMOEBIASIS [None]
  - AMOEBIC COLITIS [None]
